FAERS Safety Report 9387640 (Version 3)
Quarter: 2013Q3

REPORT INFORMATION
  Report Type: Spontaneous
  Country: SE (occurrence: None)
  Receive Date: 20130624
  Receipt Date: 20130911
  Transmission Date: 20140515
  Serious: Yes (Hospitalization, Other)
  Sender: FDA-Public Use
  Company Number: AESWE201300215

PATIENT
  Age: 69 Year
  Sex: Male
  Weight: 70 kg

DRUGS (13)
  1. GAMUNEX (IMMUNE GLOBULIN IV (HUMAN), CAPRYLATE/CHROMATOGRAPHY PURIFIED) (10 PCT) [Suspect]
     Indication: TRANSPLANT REJECTION
     Route: 042
     Dates: start: 20121214, end: 20121214
  2. PHYSIOTENS [Concomitant]
  3. NATRIUMBIKARBONAT [Concomitant]
  4. MABTHERA [Concomitant]
  5. ETALPHA [Concomitant]
  6. NEO RECORMON [Concomitant]
  7. ALFADIL [Concomitant]
  8. FURIX [Concomitant]
  9. FELODIPIN [Concomitant]
  10. APRESOLIN [Concomitant]
  11. CELLCEPT /01275102/ [Concomitant]
  12. ADVAGRAF [Concomitant]
  13. PREDNISON [Concomitant]

REACTIONS (5)
  - Renal failure acute [None]
  - Pyrexia [None]
  - Malaise [None]
  - Bradycardia [None]
  - Headache [None]
